FAERS Safety Report 8538148-2 (Version None)
Quarter: 2012Q3

REPORT INFORMATION
  Report Type: 
  Country: None (occurrence: None)
  Receive Date: 20120726
  Receipt Date: 20120717
  Transmission Date: 20120928
  Serious: Yes (Other)
  Sender: FDA-Public Use
  Company Number: NZ-BRISTOL-MYERS SQUIBB COMPANY-16785347

PATIENT
  Age: 44 Year
  Sex: Female

DRUGS (4)
  1. ABILIFY [Suspect]
  2. OLANZAPINE [Suspect]
     Dosage: TABS
  3. CITALOPRAM HYDROBROMIDE [Suspect]
     Dosage: TABS
  4. ZIPRASIDONE HCL [Suspect]
     Dosage: TABS

REACTIONS (2)
  - SYNCOPE [None]
  - BUNDLE BRANCH BLOCK [None]
